FAERS Safety Report 7153643-9 (Version None)
Quarter: 2010Q4

REPORT INFORMATION
  Report Type: 
  Country: None (occurrence: None)
  Receive Date: 20101130
  Receipt Date: 20101115
  Transmission Date: 20110411
  Serious: Yes (Hospitalization)
  Sender: FDA-Public Use
  Company Number: 018055

PATIENT
  Sex: Male

DRUGS (6)
  1. CERTOLIZUMAB PEGOL (CERTOLIZUMAB PEGOL) [Suspect]
     Indication: RHEUMATOID ARTHRITIS
     Dosage: (200 MG 1X/2 WEEKS SUBCUTANEOUS)
     Route: 058
     Dates: start: 20100128, end: 20100810
  2. REBAMIPIDE [Concomitant]
  3. LOXOPROFEN SODIUM [Concomitant]
  4. ALENDRONATE SODIUM [Concomitant]
  5. PIOGLITAZONE HYDROCHLORIDE [Concomitant]
  6. AMLODIPINE BESILATE [Concomitant]

REACTIONS (9)
  - CANDIDA TEST POSITIVE [None]
  - DRUG EFFECT DECREASED [None]
  - INFECTION SUSCEPTIBILITY INCREASED [None]
  - LUNG NEOPLASM MALIGNANT [None]
  - ORGANISING PNEUMONIA [None]
  - PLEURAL EFFUSION [None]
  - PNEUMONIA BACTERIAL [None]
  - PULMONARY FIBROSIS [None]
  - PULMONARY TUBERCULOSIS [None]
